FAERS Safety Report 24876781 (Version 1)
Quarter: 2025Q1

REPORT INFORMATION
  Report Type: Spontaneous
  Country: FR (occurrence: FR)
  Receive Date: 20250123
  Receipt Date: 20250123
  Transmission Date: 20250408
  Serious: Yes (Hospitalization)
  Sender: TEVA
  Company Number: None

PATIENT
  Age: 43 Year
  Sex: Female
  Weight: 88 kg

DRUGS (39)
  1. METHOTREXATE [Suspect]
     Active Substance: METHOTREXATE
     Indication: Prophylaxis against graft versus host disease
     Route: 042
     Dates: start: 20231207, end: 20231207
  2. METHOTREXATE [Suspect]
     Active Substance: METHOTREXATE
     Indication: Prophylaxis against graft versus host disease
     Route: 042
     Dates: start: 20231212, end: 20231212
  3. METHOTREXATE [Suspect]
     Active Substance: METHOTREXATE
     Indication: Prophylaxis against graft versus host disease
     Route: 042
     Dates: start: 20231209, end: 20231209
  4. RACECADOTRIL ARROW [Concomitant]
     Indication: Diarrhoea
     Route: 048
     Dates: start: 20231218, end: 20231220
  5. RACECADOTRIL ARROW [Concomitant]
     Indication: Diarrhoea
     Route: 048
     Dates: start: 20231203, end: 20231204
  6. RACECADOTRIL ARROW [Concomitant]
     Indication: Diarrhoea
     Route: 048
     Dates: start: 20231207, end: 20231214
  7. METRONIDAZOLE [Concomitant]
     Active Substance: METRONIDAZOLE
     Indication: Gastrointestinal infection
     Route: 042
     Dates: start: 20231221, end: 20231228
  8. METRONIDAZOLE [Concomitant]
     Active Substance: METRONIDAZOLE
     Indication: Gastrointestinal infection
     Route: 042
     Dates: start: 20231208, end: 20231215
  9. POSACONAZOLE [Concomitant]
     Active Substance: POSACONAZOLE
     Indication: Opportunistic infection prophylaxis
     Route: 042
     Dates: start: 20231217, end: 20231219
  10. TREOSULFAN [Concomitant]
     Active Substance: TREOSULFAN
     Indication: Bone marrow conditioning regimen
     Route: 042
     Dates: start: 20231130, end: 20231202
  11. PREVYMIS [Concomitant]
     Active Substance: LETERMOVIR
     Indication: Opportunistic infection prophylaxis
     Route: 048
     Dates: start: 20231218
  12. PREVYMIS [Concomitant]
     Active Substance: LETERMOVIR
     Indication: Opportunistic infection prophylaxis
     Route: 048
     Dates: start: 20231206, end: 20231215
  13. CHLORPROMAZINE [Suspect]
     Active Substance: CHLORPROMAZINE
     Indication: Vomiting
     Dosage: 25 MG/5 ML, SOLUTION FOR INJECTION IN AMPOULE
     Route: 042
     Dates: start: 20231210, end: 20231215
  14. POSACONAZOLE [Concomitant]
     Active Substance: POSACONAZOLE
     Indication: Opportunistic infection prophylaxis
     Route: 048
     Dates: start: 20231220
  15. POSACONAZOLE [Concomitant]
     Active Substance: POSACONAZOLE
     Indication: Opportunistic infection prophylaxis
     Route: 048
     Dates: start: 20231206, end: 20231215
  16. ACETAMINOPHEN [Concomitant]
     Active Substance: ACETAMINOPHEN
     Indication: Pain
     Route: 048
     Dates: start: 20231130, end: 20240106
  17. ZINPLAVA [Suspect]
     Active Substance: BEZLOTOXUMAB
     Indication: Clostridium difficile colitis
     Route: 042
     Dates: start: 20231210, end: 20231210
  18. SOLU-MEDROL [Concomitant]
     Active Substance: METHYLPREDNISOLONE SODIUM SUCCINATE
     Indication: Prophylaxis against transplant rejection
     Route: 042
     Dates: start: 20231203, end: 20231205
  19. GRAFALON [Suspect]
     Active Substance: LAPINE T-LYMPHOCYTE IMMUNE GLOBULIN
     Indication: Prophylaxis against graft versus host disease
     Route: 042
     Dates: start: 20231203, end: 20231205
  20. CYCLOSPORINE [Concomitant]
     Active Substance: CYCLOSPORINE
     Indication: Prophylaxis against transplant rejection
     Dosage: SOLUTION FOR INJECTION FOR I.V. INFUSION
     Route: 042
     Dates: start: 20240112, end: 20240119
  21. CYCLOSPORINE [Concomitant]
     Active Substance: CYCLOSPORINE
     Indication: Prophylaxis against transplant rejection
     Dosage: SOLUTION FOR INJECTION FOR I.V. INFUSION
     Route: 042
     Dates: start: 20231216, end: 20231219
  22. CYCLOSPORINE [Concomitant]
     Active Substance: CYCLOSPORINE
     Indication: Prophylaxis against transplant rejection
     Dosage: SOLUTION FOR INJECTION FOR I.V. INFUSION
     Route: 042
     Dates: start: 20231219, end: 20231227
  23. CYCLOSPORINE [Concomitant]
     Active Substance: CYCLOSPORINE
     Indication: Prophylaxis against transplant rejection
     Dosage: SOLUTION FOR INJECTION FOR I.V. INFUSION
     Route: 042
     Dates: start: 20231205, end: 20231212
  24. CYCLOSPORINE [Concomitant]
     Active Substance: CYCLOSPORINE
     Indication: Prophylaxis against transplant rejection
     Dosage: SOLUTION FOR INJECTION FOR I.V. INFUSION
     Route: 042
     Dates: start: 20240119, end: 20240124
  25. CYCLOSPORINE [Concomitant]
     Active Substance: CYCLOSPORINE
     Indication: Prophylaxis against transplant rejection
     Dosage: SOLUTION FOR INJECTION FOR I.V. INFUSION
     Route: 042
     Dates: start: 20231227, end: 20240109
  26. CYCLOSPORINE [Concomitant]
     Active Substance: CYCLOSPORINE
     Indication: Prophylaxis against transplant rejection
     Dosage: SOLUTION FOR INJECTION FOR I.V. INFUSION
     Route: 042
     Dates: start: 20240109, end: 20240112
  27. CYCLOSPORINE [Concomitant]
     Active Substance: CYCLOSPORINE
     Indication: Prophylaxis against transplant rejection
     Dosage: SOLUTION FOR INJECTION FOR I.V. INFUSION
     Route: 042
     Dates: start: 20231212, end: 20231214
  28. CYCLOSPORINE [Concomitant]
     Active Substance: CYCLOSPORINE
     Indication: Prophylaxis against transplant rejection
     Dosage: SOLUTION FOR INJECTION FOR I.V. INFUSION
     Route: 042
     Dates: start: 20231214, end: 20231216
  29. CEFEPIME [Concomitant]
     Active Substance: CEFEPIME HYDROCHLORIDE
     Indication: Febrile neutropenia
     Dosage: (IV)
     Route: 042
     Dates: start: 20231208, end: 20231214
  30. CEFEPIME [Concomitant]
     Active Substance: CEFEPIME HYDROCHLORIDE
     Indication: Febrile neutropenia
     Dosage: (IV)
     Route: 042
     Dates: start: 20231203, end: 20231208
  31. CEFEPIME [Concomitant]
     Active Substance: CEFEPIME HYDROCHLORIDE
     Indication: Febrile neutropenia
     Dosage: (IV)
     Route: 042
     Dates: start: 20231217, end: 20231218
  32. FIDAXOMICIN [Concomitant]
     Active Substance: FIDAXOMICIN
     Indication: Clostridium difficile colitis
     Route: 042
     Dates: start: 20231209, end: 20231228
  33. ONDANSETRON [Concomitant]
     Active Substance: ONDANSETRON
     Indication: Vomiting
     Route: 042
     Dates: start: 20231207, end: 20231207
  34. ONDANSETRON [Concomitant]
     Active Substance: ONDANSETRON
     Indication: Vomiting
     Route: 042
     Dates: start: 20231208, end: 20231226
  35. PANTOPRAZOLE [Concomitant]
     Active Substance: PANTOPRAZOLE
     Indication: Dyspepsia
     Route: 048
     Dates: start: 20231128
  36. VALACYCLOVIR [Concomitant]
     Active Substance: VALACYCLOVIR HYDROCHLORIDE
     Indication: Opportunistic infection prophylaxis
     Route: 048
     Dates: start: 20240111
  37. VALACYCLOVIR [Concomitant]
     Active Substance: VALACYCLOVIR HYDROCHLORIDE
     Indication: Opportunistic infection prophylaxis
     Route: 048
     Dates: start: 20231128, end: 20231215
  38. METOCLOPRAMIDE HYDROCHLORIDE [Suspect]
     Active Substance: METOCLOPRAMIDE HYDROCHLORIDE
     Indication: Vomiting
     Route: 042
     Dates: start: 20231128, end: 20231215
  39. FLUDARABINE PHOSPHATE [Concomitant]
     Active Substance: FLUDARABINE PHOSPHATE
     Indication: Bone marrow conditioning regimen
     Route: 042
     Dates: start: 20231129, end: 20231203

REACTIONS (1)
  - Pancreatitis necrotising [Recovered/Resolved]

NARRATIVE: CASE EVENT DATE: 20231215
